FAERS Safety Report 15920216 (Version 1)
Quarter: 2019Q1

REPORT INFORMATION
  Report Type: Report from Study
  Country: ES (occurrence: ES)
  Receive Date: 20190205
  Receipt Date: 20190205
  Transmission Date: 20190417
  Serious: Yes (Hospitalization, Other)
  Sender: FDA-Public Use
  Company Number: ES-MYLANLABS-2019M1008937

PATIENT
  Age: 86 Year
  Sex: Female

DRUGS (8)
  1. FUROSEMIDA                         /00032601/ [Concomitant]
     Active Substance: FUROSEMIDE
     Indication: CARDIAC FAILURE
     Dosage: UN COMPRIMIDO AL DESAYUNO.
     Route: 048
     Dates: start: 2018, end: 20180305
  2. ATORVASTATIN [Suspect]
     Active Substance: ATORVASTATIN
     Indication: ACUTE MYOCARDIAL INFARCTION
     Dosage: 80 MILLIGRAM, QD
     Route: 048
     Dates: start: 201802, end: 20180305
  3. ADIRO [Concomitant]
     Active Substance: ASPIRIN
     Dosage: UN COMPRIMIDO A LA COMIDA
     Route: 048
     Dates: start: 2018
  4. CLOPIDOGREL [Concomitant]
     Active Substance: CLOPIDOGREL BISULFATE
     Dosage: UN COMPRIMIDO A LA COMIDA
     Route: 048
     Dates: start: 2018
  5. AMIODARONA                         /00133101/ [Interacting]
     Active Substance: AMIODARONE
     Indication: VENTRICULAR TACHYCARDIA
     Dosage: UN COMPRIMIDO A LA COMIDA
     Route: 048
     Dates: start: 20180131, end: 20180305
  6. OMEPRAZOL                          /00661201/ [Concomitant]
     Active Substance: OMEPRAZOLE
     Dosage: 1-0-0
     Route: 048
  7. BISOPROLOL [Concomitant]
     Active Substance: BISOPROLOL
     Indication: TACHYCARDIA
     Dosage: UN COMPRIMIDO AL DESAYUNO Y OTRO A LA CENA.
     Route: 048
     Dates: start: 2018
  8. LEXATIN                            /00424801/ [Concomitant]
     Active Substance: BROMAZEPAM
     Dosage: 0-0-1
     Route: 048

REACTIONS (6)
  - Rhabdomyolysis [Recovering/Resolving]
  - Muscular weakness [Recovering/Resolving]
  - Decreased appetite [Recovering/Resolving]
  - Hepatitis toxic [Recovering/Resolving]
  - Asthenia [Recovering/Resolving]
  - Drug interaction [Unknown]

NARRATIVE: CASE EVENT DATE: 201802
